FAERS Safety Report 22235024 (Version 3)
Quarter: 2025Q3

REPORT INFORMATION
  Report Type: Report from Study
  Country: US (occurrence: US)
  Receive Date: 20230420
  Receipt Date: 20250710
  Transmission Date: 20251020
  Serious: Yes (Hospitalization, Other)
  Sender: JAZZ
  Company Number: US-JAZZ PHARMACEUTICALS-2023-US-008502

PATIENT
  Age: 20 Year
  Sex: Female

DRUGS (1)
  1. EPIDIOLEX [Suspect]
     Active Substance: CANNABIDIOL
     Indication: Lennox-Gastaut syndrome
     Dosage: 450 MILLIGRAM, BID
     Route: 048
     Dates: start: 20230316

REACTIONS (2)
  - Staphylococcal infection [Recovered/Resolved]
  - Pneumonia [Recovered/Resolved]
